FAERS Safety Report 19205635 (Version 1)
Quarter: 2021Q2

REPORT INFORMATION
  Report Type: Spontaneous
  Country: US (occurrence: US)
  Receive Date: 20210503
  Receipt Date: 20210503
  Transmission Date: 20210717
  Serious: No
  Sender: FDA-Public Use
  Company Number: US-FARMAPROD-202101-0112

PATIENT
  Sex: Female

DRUGS (7)
  1. EPLERENONE. [Concomitant]
     Active Substance: EPLERENONE
  2. LOTEPREDNOL ETABONATE [Concomitant]
     Active Substance: LOTEPREDNOL ETABONATE
  3. OXERVATE [Suspect]
     Active Substance: CENEGERMIN-BKBJ
     Indication: NEUROTROPHIC KERATOPATHY
     Route: 047
     Dates: start: 20201130
  4. METOPROLOL SUCCINATE. [Concomitant]
     Active Substance: METOPROLOL SUCCINATE
  5. MOXIFLOXACIN. [Concomitant]
     Active Substance: MOXIFLOXACIN
  6. OXERVATE [Suspect]
     Active Substance: CENEGERMIN-BKBJ
     Indication: ULCERATIVE KERATITIS
  7. ESOMEPRAZOLE MAGNESIUM. [Concomitant]
     Active Substance: ESOMEPRAZOLE MAGNESIUM

REACTIONS (3)
  - Eye pain [Unknown]
  - Therapy interrupted [Unknown]
  - Headache [Unknown]
